FAERS Safety Report 23901973 (Version 2)
Quarter: 2024Q2

REPORT INFORMATION
  Report Type: Spontaneous
  Country: FR (occurrence: FR)
  Receive Date: 20240526
  Receipt Date: 20240531
  Transmission Date: 20240715
  Serious: Yes (Other)
  Sender: FDA-Public Use
  Company Number: FR-CELLTRION INC.-2024FR011137

PATIENT
  Age: 29 Year
  Sex: Male

DRUGS (3)
  1. REMICADE [Suspect]
     Active Substance: INFLIXIMAB
     Indication: Crohn^s disease
     Dosage: UNK
     Route: 065
  2. ADALIMUMAB [Suspect]
     Active Substance: ADALIMUMAB\ISOPROPYL ALCOHOL
     Indication: Crohn^s disease
     Dosage: 80 MG EVERY 14 DAYS
     Route: 058
  3. UPADACITINIB [Concomitant]
     Active Substance: UPADACITINIB
     Indication: Crohn^s disease
     Dosage: 45 MG (WITH IMPROVEMENT IN THE ENDOBUCCAL LESIONS)
     Route: 048

REACTIONS (2)
  - Angioedema [Unknown]
  - Treatment failure [Unknown]
